FAERS Safety Report 5377719-1 (Version None)
Quarter: 2007Q3

REPORT INFORMATION
  Report Type: 
  Country: None (occurrence: None)
  Receive Date: 20070703
  Receipt Date: 20070628
  Transmission Date: 20080115
  Serious: Yes (Other)
  Sender: FDA-Public Use
  Company Number: GB-BOEHRINGER INGELHEIM PHARMACEUTICALS, INC.-2007-UK-02132UK

PATIENT
  Age: 63 Year
  Sex: Male
  Weight: 80 kg

DRUGS (7)
  1. PRAMIPEXOLE DIHYDROCHLORIDE [Suspect]
     Indication: RESTLESS LEGS SYNDROME
     Route: 048
     Dates: start: 20070610, end: 20070611
  2. AMLODIPINE [Concomitant]
     Indication: HYPERTENSION
     Route: 048
  3. ASPIRIN [Concomitant]
     Indication: HYPERTENSION
     Route: 042
  4. BENDROFLUMETHIAZIDE [Concomitant]
     Indication: HYPERTENSION
     Route: 048
  5. CELECOXIB [Concomitant]
     Route: 048
     Dates: start: 20070606
  6. GABAPENTIN [Concomitant]
     Indication: NEURALGIA
     Route: 048
  7. LOSARTAN POTASSIUM [Concomitant]
     Indication: HYPERTENSION

REACTIONS (3)
  - DIZZINESS [None]
  - MALAISE [None]
  - VERTIGO [None]
